FAERS Safety Report 6945378-X (Version None)
Quarter: 2010Q3

REPORT INFORMATION
  Report Type: 
  Country: None (occurrence: None)
  Receive Date: 20100827
  Receipt Date: 20100819
  Transmission Date: 20110219
  Serious: Yes (Hospitalization)
  Sender: FDA-Public Use
  Company Number: GB-ROCHE-708663

PATIENT
  Sex: Female
  Weight: 67 kg

DRUGS (2)
  1. CAPECITABINE [Suspect]
     Indication: COLORECTAL CANCER
     Dosage: CURRENT CYCLE NUMBER: 1, DATE MOST RECENT DOSE GIVEN: 02 JUNE 2010, INTERRUPTED.
     Route: 048
     Dates: start: 20100524, end: 20100603
  2. BEVACIZUMAB [Suspect]
     Indication: COLORECTAL CANCER
     Dosage: CURRENT CYCLE NUMBER: 1, FORM: INFUSION, DATE MOST RECENT DOSE GIVEN: 24 MAY 2010, INTERRUPTED.
     Route: 042
     Dates: start: 20100524

REACTIONS (5)
  - DEHYDRATION [None]
  - DIARRHOEA [None]
  - MUCOSAL INFLAMMATION [None]
  - PALMAR-PLANTAR ERYTHRODYSAESTHESIA SYNDROME [None]
  - VOMITING [None]
